FAERS Safety Report 7904141-3 (Version None)
Quarter: 2011Q4

REPORT INFORMATION
  Report Type: 
  Country: None (occurrence: None)
  Receive Date: 20111109
  Receipt Date: 20111101
  Transmission Date: 20120403
  Serious: Yes (Other)
  Sender: FDA-Public Use
  Company Number: US-PFIZER INC-2011267766

PATIENT
  Sex: Male
  Weight: 61.224 kg

DRUGS (3)
  1. CELEBREX [Suspect]
     Indication: HEREDITARY SPASTIC PARAPLEGIA
     Dosage: UNK, 1X/DAY
     Route: 048
     Dates: start: 20110201
  2. CARBATROL [Concomitant]
     Indication: CONVULSION
     Dosage: 600 MG, UNK
  3. CELEBREX [Suspect]
     Indication: PAIN

REACTIONS (5)
  - LOSS OF CONSCIOUSNESS [None]
  - DYSPNOEA [None]
  - RESPIRATORY TRACT CONGESTION [None]
  - FALL [None]
  - WEIGHT DECREASED [None]
